FAERS Safety Report 22631794 (Version 1)
Quarter: 2023Q2

REPORT INFORMATION
  Report Type: Report from Study
  Country: US (occurrence: US)
  Receive Date: 20230623
  Receipt Date: 20230623
  Transmission Date: 20230722
  Serious: No
  Sender: FDA-Public Use
  Company Number: US-002147023-NVSC2023US141788

PATIENT

DRUGS (1)
  1. ENTRESTO [Suspect]
     Active Substance: SACUBITRIL\VALSARTAN
     Indication: Product used for unknown indication
     Dosage: 1 DOSAGE FORM, BID
     Route: 065
     Dates: start: 20230616, end: 20230620

REACTIONS (2)
  - Hypotension [Recovered/Resolved with Sequelae]
  - Dizziness [Recovered/Resolved with Sequelae]

NARRATIVE: CASE EVENT DATE: 20230617
